FAERS Safety Report 8610518-3 (Version None)
Quarter: 2012Q3

REPORT INFORMATION
  Report Type: 
  Country: None (occurrence: None)
  Receive Date: 20120822
  Receipt Date: 20120817
  Transmission Date: 20120928
  Serious: Yes (Death)
  Sender: FDA-Public Use
  Company Number: US-CELGENEUS-163-21880-12080614

PATIENT
  Sex: Male

DRUGS (15)
  1. JANUVIA [Concomitant]
     Route: 065
  2. VITAMIN B-12 [Concomitant]
     Route: 065
  3. TRICOR [Concomitant]
     Route: 065
  4. ASPIRIN [Concomitant]
     Dosage: 325 MILLIGRAM
     Route: 065
  5. ACEBUTOLOL [Concomitant]
     Route: 065
  6. REVLIMID [Suspect]
     Indication: MULTIPLE MYELOMA
     Dosage: 25 MILLIGRAM
     Route: 048
     Dates: start: 20090330, end: 20120101
  7. VITAMIN E [Concomitant]
     Route: 065
  8. SULAR [Concomitant]
     Route: 065
  9. SIMVASTATIN [Concomitant]
     Route: 065
  10. FOLIC ACID [Concomitant]
     Route: 065
  11. LEVEMIR [Concomitant]
     Route: 065
  12. DEXAMETHASONE [Concomitant]
     Route: 065
  13. VITAMIN D [Concomitant]
     Route: 065
  14. TRILIPIX [Concomitant]
     Route: 065
  15. IRON [Concomitant]
     Route: 065

REACTIONS (1)
  - DEATH [None]
